FAERS Safety Report 9386863 (Version 1)
Quarter: 2013Q3

REPORT INFORMATION
  Report Type: Spontaneous
  Country: FR (occurrence: FR)
  Receive Date: 20130708
  Receipt Date: 20130708
  Transmission Date: 20140515
  Serious: Yes (Hospitalization)
  Sender: FDA-Public Use
  Company Number: FR-009507513-1307FRA000935

PATIENT
  Age: 89 Year
  Sex: Female

DRUGS (10)
  1. FOSAVANCE [Suspect]
     Dosage: 1 DF, QW
     Route: 048
     Dates: end: 20111214
  2. COUMADIN [Suspect]
     Dosage: 1 MG, QD
     Route: 048
     Dates: end: 20111214
  3. TRINIPATCH [Concomitant]
  4. KARDEGIC [Concomitant]
  5. LASILIX [Concomitant]
  6. TEMERIT [Concomitant]
  7. COVERSYL (PERINDOPRIL ARGININE) [Concomitant]
  8. DOLIPRANE [Concomitant]
  9. ATHYMIL [Concomitant]
  10. IMOVANE [Concomitant]

REACTIONS (1)
  - Anaemia [Recovering/Resolving]
